FAERS Safety Report 13930104 (Version 1)
Quarter: 2017Q3

REPORT INFORMATION
  Report Type: Spontaneous
  Country: DE (occurrence: DE)
  Receive Date: 20170901
  Receipt Date: 20170901
  Transmission Date: 20171127
  Serious: Yes (Other)
  Sender: FDA-Public Use
  Company Number: DE-TEVA-800687GER

PATIENT
  Age: 59 Year
  Sex: Female
  Weight: 76 kg

DRUGS (24)
  1. CARBOPLATIN-ACTAVIS 10 MG/ML CONCENTRATE FOR SOLUTION FOR INFUSION [Suspect]
     Active Substance: CARBOPLATIN
     Indication: METASTASES TO SOFT TISSUE
  2. DEXAMETHASON [Concomitant]
     Active Substance: DEXAMETHASONE
     Indication: BREAST CANCER FEMALE
     Route: 042
  3. GLUCOSE 5% [Concomitant]
     Active Substance: DEXTROSE
     Indication: BREAST CANCER FEMALE
     Dosage: EVERY 21 DAYS
     Route: 042
  4. DEXAMETHASON [Concomitant]
     Active Substance: DEXAMETHASONE
     Indication: METASTASES TO LIVER
  5. ONDANSETRON [Concomitant]
     Active Substance: ONDANSETRON
     Indication: BREAST CANCER FEMALE
     Route: 042
  6. ONDANSETRON [Concomitant]
     Active Substance: ONDANSETRON
     Indication: METASTASES TO BONE
  7. ONDANSETRON [Concomitant]
     Active Substance: ONDANSETRON
     Indication: METASTASES TO LIVER
  8. GEMCITABINE [Concomitant]
     Active Substance: GEMCITABINE\GEMCITABINE HYDROCHLORIDE
     Indication: BREAST CANCER FEMALE
     Dosage: 1900 MILLIGRAM DAILY; EVERY 21 DAYS
     Route: 042
  9. GEMCITABINE [Concomitant]
     Active Substance: GEMCITABINE\GEMCITABINE HYDROCHLORIDE
     Indication: METASTASES TO LIVER
  10. NACL [Concomitant]
     Active Substance: SODIUM CHLORIDE
     Indication: BREAST CANCER FEMALE
     Dosage: EVERY 21 DAYS
     Route: 042
  11. GEMCITABINE [Concomitant]
     Active Substance: GEMCITABINE\GEMCITABINE HYDROCHLORIDE
     Indication: METASTASES TO BONE
  12. GLUCOSE 5% [Concomitant]
     Active Substance: DEXTROSE
     Indication: METASTASES TO SOFT TISSUE
  13. GEMCITABINE [Concomitant]
     Active Substance: GEMCITABINE\GEMCITABINE HYDROCHLORIDE
     Indication: METASTASES TO SOFT TISSUE
  14. DEXAMETHASON [Concomitant]
     Active Substance: DEXAMETHASONE
     Indication: METASTASES TO BONE
  15. DEXAMETHASON [Concomitant]
     Active Substance: DEXAMETHASONE
     Indication: METASTASES TO SOFT TISSUE
  16. NACL [Concomitant]
     Active Substance: SODIUM CHLORIDE
     Indication: METASTASES TO LIVER
  17. CARBOPLATIN-ACTAVIS 10 MG/ML CONCENTRATE FOR SOLUTION FOR INFUSION [Suspect]
     Active Substance: CARBOPLATIN
     Indication: BREAST CANCER FEMALE
     Dosage: 330 MILLIGRAM DAILY; REACTION AT 3RD ADMINISTRATION OF BATCH 6NK5161 ON 11-AUG-2017
     Route: 042
     Dates: start: 20170630, end: 20170811
  18. CARBOPLATIN-ACTAVIS 10 MG/ML CONCENTRATE FOR SOLUTION FOR INFUSION [Suspect]
     Active Substance: CARBOPLATIN
     Indication: METASTASES TO BONE
  19. GLUCOSE 5% [Concomitant]
     Active Substance: DEXTROSE
     Indication: METASTASES TO LIVER
  20. NACL [Concomitant]
     Active Substance: SODIUM CHLORIDE
     Indication: METASTASES TO BONE
  21. CARBOPLATIN-ACTAVIS 10 MG/ML CONCENTRATE FOR SOLUTION FOR INFUSION [Suspect]
     Active Substance: CARBOPLATIN
     Indication: METASTASES TO LIVER
  22. ONDANSETRON [Concomitant]
     Active Substance: ONDANSETRON
     Indication: METASTASES TO SOFT TISSUE
  23. GLUCOSE 5% [Concomitant]
     Active Substance: DEXTROSE
     Indication: METASTASES TO BONE
  24. NACL [Concomitant]
     Active Substance: SODIUM CHLORIDE
     Indication: METASTASES TO SOFT TISSUE

REACTIONS (3)
  - Pruritus [Recovered/Resolved]
  - Blood pressure decreased [Recovered/Resolved]
  - Dyspnoea [Recovered/Resolved]

NARRATIVE: CASE EVENT DATE: 20170811
